FAERS Safety Report 13944472 (Version 1)
Quarter: 2017Q3

REPORT INFORMATION
  Report Type: Spontaneous
  Country: RU (occurrence: RU)
  Receive Date: 20170907
  Receipt Date: 20170907
  Transmission Date: 20171128
  Serious: Yes (Other)
  Sender: FDA-Public Use
  Company Number: RU-ASTRAZENECA-2017SE90527

PATIENT
  Age: 62 Year
  Sex: Female
  Weight: 110 kg

DRUGS (4)
  1. PANCREATIN [Concomitant]
     Active Substance: PANCRELIPASE
  2. LOSARTAN. [Concomitant]
     Active Substance: LOSARTAN
  3. FORXIGA [Suspect]
     Active Substance: DAPAGLIFLOZIN
     Dosage: 10 MG, PERIODICALLY NOT EVERY DAY
     Route: 048
     Dates: start: 2017
  4. INDAPAMIDE. [Concomitant]
     Active Substance: INDAPAMIDE

REACTIONS (2)
  - Intentional product misuse [Recovered/Resolved]
  - Allergic oedema [Recovered/Resolved]
